FAERS Safety Report 8480239 (Version 9)
Quarter: 2015Q1

REPORT INFORMATION
  Report Type: Report from Study
  Country: DE (occurrence: DE)
  Receive Date: 20120328
  Receipt Date: 20150304
  Transmission Date: 20150721
  Serious: Yes (Hospitalization)
  Sender: FDA-Public Use
  Company Number: DE-ROCHE-1050366

PATIENT
  Age: 77 Year
  Sex: Female
  Weight: 60.5 kg

DRUGS (8)
  1. NOVALGIN [Concomitant]
     Active Substance: METAMIZOLE SODIUM
     Route: 065
     Dates: start: 201111, end: 20120327
  2. DICLOFENAC [Concomitant]
     Active Substance: DICLOFENAC
     Route: 065
     Dates: start: 20120125
  3. VEMURAFENIB [Suspect]
     Active Substance: VEMURAFENIB
     Route: 048
     Dates: start: 20120227, end: 20120410
  4. TILIDINE [Concomitant]
     Active Substance: TILIDINE
     Dosage: DRUG NAME: TILIDIN
     Route: 065
     Dates: start: 201111
  5. SIMVASTATIN. [Concomitant]
     Active Substance: SIMVASTATIN
     Route: 065
     Dates: start: 200502
  6. ENALAPRIL [Concomitant]
     Active Substance: ENALAPRIL
     Dosage: 10/25 MG
     Route: 065
     Dates: start: 200502
  7. OMEPRAZOLE. [Concomitant]
     Active Substance: OMEPRAZOLE
     Route: 065
     Dates: start: 200502
  8. VEMURAFENIB [Suspect]
     Active Substance: VEMURAFENIB
     Indication: MALIGNANT MELANOMA
     Dosage: MOST RECENT DOSE PRIOR TO SAE 21/FEB/2012
     Route: 048
     Dates: start: 20120109, end: 20120222

REACTIONS (1)
  - Abdominal pain [Recovered/Resolved]

NARRATIVE: CASE EVENT DATE: 20120312
